FAERS Safety Report 9499518 (Version 1)
Quarter: 2013Q3

REPORT INFORMATION
  Report Type: Spontaneous
  Country: AU (occurrence: None)
  Receive Date: 20130903
  Receipt Date: 20130903
  Transmission Date: 20140515
  Serious: Yes (Other)
  Sender: FDA-Public Use
  Company Number: SYM-2013-10011

PATIENT
  Sex: Female

DRUGS (5)
  1. CARDIZEM [Suspect]
     Indication: PRODUCT USED FOR UNKNOWN INDICATION
  2. ATACAND [Suspect]
     Indication: ESSENTIAL HYPERTENSION
     Route: 048
  3. ATACAND [Suspect]
     Indication: ESSENTIAL HYPERTENSION
     Route: 048
  4. PHYSIOTENS [Suspect]
     Indication: ESSENTIAL HYPERTENSION
     Route: 048
  5. NORVASC (AMLODIPINE BESILATE) (AMLODIPINE BESILATE) [Concomitant]

REACTIONS (5)
  - Dry mouth [None]
  - Aphasia [None]
  - Adverse event [None]
  - Insomnia [None]
  - Somnolence [None]
